FAERS Safety Report 26116319 (Version 1)
Quarter: 2025Q4

REPORT INFORMATION
  Report Type: Spontaneous
  Country: GB (occurrence: GB)
  Receive Date: 20251203
  Receipt Date: 20251203
  Transmission Date: 20260117
  Serious: Yes (Hospitalization, Other)
  Sender: PHARMAXIS
  Company Number: None

PATIENT

DRUGS (1)
  1. MANNITOL [Suspect]
     Active Substance: MANNITOL
     Indication: Product used for unknown indication
     Route: 065

REACTIONS (3)
  - Candida infection [Recovering/Resolving]
  - Rash [Recovered/Resolved]
  - Dyspnoea [Recovered/Resolved]
